FAERS Safety Report 22588210 (Version 2)
Quarter: 2023Q2

REPORT INFORMATION
  Report Type: Report from Study
  Country: US (occurrence: US)
  Receive Date: 20230612
  Receipt Date: 20230619
  Transmission Date: 20230722
  Serious: No
  Sender: FDA-Public Use
  Company Number: US-002147023-NVSC2023US129876

PATIENT
  Age: 57 Year
  Sex: Female

DRUGS (2)
  1. ENTRESTO [Suspect]
     Active Substance: SACUBITRIL\VALSARTAN
     Indication: Diastolic dysfunction
     Dosage: 0.5 DOSAGE FORM, BID (1/2 TABLET)
     Route: 048
     Dates: start: 20230407
  2. LISINOPRIL [Suspect]
     Active Substance: LISINOPRIL
     Indication: Product used for unknown indication
     Dosage: 5 MG/KG
     Route: 065

REACTIONS (9)
  - Cough [Unknown]
  - Swelling face [Unknown]
  - Anxiety [Unknown]
  - Feeling abnormal [Unknown]
  - Weight increased [Unknown]
  - Malaise [Unknown]
  - Swelling [Unknown]
  - Underdose [Unknown]
  - Wrong technique in product usage process [Unknown]

NARRATIVE: CASE EVENT DATE: 20230522
